FAERS Safety Report 18670590 (Version 1)
Quarter: 2020Q4

REPORT INFORMATION
  Report Type: Spontaneous
  Country: CO (occurrence: CO)
  Receive Date: 20201228
  Receipt Date: 20201228
  Transmission Date: 20210114
  Serious: Yes (Hospitalization)
  Sender: FDA-Public Use
  Company Number: CO-INCYTE CORPORATION-2020IN012885

PATIENT

DRUGS (1)
  1. JAKAVI [Suspect]
     Active Substance: RUXOLITINIB
     Indication: COVID-19
     Dosage: UNK
     Route: 065

REACTIONS (4)
  - Leukopenia [Unknown]
  - Neutropenia [Unknown]
  - Klebsiella infection [Unknown]
  - Off label use [Unknown]
